FAERS Safety Report 6785888-1 (Version None)
Quarter: 2010Q2

REPORT INFORMATION
  Report Type: 
  Country: None (occurrence: None)
  Receive Date: 20100621
  Receipt Date: 20100621
  Transmission Date: 20101027
  Serious: Yes (Hospitalization, Other)
  Sender: FDA-Public Use
  Company Number: None

PATIENT
  Age: 17 Year
  Sex: Male
  Weight: 70.3075 kg

DRUGS (2)
  1. ACCUTANE [Suspect]
     Indication: ACNE
     Dosage: 1 PILL 2 PO
     Route: 048
     Dates: start: 20061007, end: 20070327
  2. ISOTRETINOIN [Concomitant]

REACTIONS (1)
  - PANCREATITIS [None]
